FAERS Safety Report 24577390 (Version 1)
Quarter: 2024Q4

REPORT INFORMATION
  Report Type: Report from Study
  Country: US (occurrence: US)
  Receive Date: 20241104
  Receipt Date: 20241104
  Transmission Date: 20250115
  Serious: Yes (Death, Other)
  Sender: GUERBET
  Company Number: US-GUERBET-US-20220066

PATIENT
  Age: 83 Year
  Sex: Male

DRUGS (1)
  1. LIPIODOL [Suspect]
     Active Substance: ETHIODIZED OIL
     Indication: Lymphangiogram
     Route: 027

REACTIONS (4)
  - Cerebral artery embolism [Fatal]
  - Splenic embolism [Unknown]
  - Renal embolism [Unknown]
  - Embolism arterial [Unknown]
